FAERS Safety Report 8104714-1 (Version None)
Quarter: 2012Q1

REPORT INFORMATION
  Report Type: 
  Country: None (occurrence: None)
  Receive Date: 20120130
  Receipt Date: 20120117
  Transmission Date: 20120608
  Serious: Yes (Hospitalization)
  Sender: FDA-Public Use
  Company Number: SAN_00027_2012

PATIENT
  Age: 71 Year
  Sex: Female

DRUGS (4)
  1. OLMESARTAN MEDOXOMIL [Concomitant]
  2. METFORMIN HCL [Suspect]
     Indication: DIABETES MELLITUS
     Dosage: (1700 MG QD)
  3. FUROSEMIDE [Concomitant]
  4. GLIMEPIRIDE [Concomitant]

REACTIONS (11)
  - LEFT VENTRICULAR DYSFUNCTION [None]
  - HAEMODIALYSIS [None]
  - RESPIRATORY ARREST [None]
  - CONTRAINDICATION TO MEDICAL TREATMENT [None]
  - RENAL FAILURE ACUTE [None]
  - DEHYDRATION [None]
  - ABSCESS NECK [None]
  - VOMITING [None]
  - DIARRHOEA [None]
  - SOMNOLENCE [None]
  - LACTIC ACIDOSIS [None]
